FAERS Safety Report 16185140 (Version 1)
Quarter: 2019Q2

REPORT INFORMATION
  Report Type: Spontaneous
  Country: US (occurrence: US)
  Receive Date: 20190308
  Receipt Date: 20190308
  Transmission Date: 20190711
  Serious: Yes (Hospitalization, Disabling)
  Sender: FDA-Public Use
  Company Number: None

PATIENT
  Age: 62 Year
  Sex: Female

DRUGS (1)
  1. 4MG TAB 2 EA RESPERIDONE [Suspect]
     Active Substance: RISPERIDONE
     Indication: AFFECTIVE DISORDER
     Dosage: ?          QUANTITY:2 UNK - UNKNOWN;?
     Route: 048

REACTIONS (1)
  - Gait inability [None]

NARRATIVE: CASE EVENT DATE: 201811
